FAERS Safety Report 9831854 (Version 2)
Quarter: 2014Q1

REPORT INFORMATION
  Report Type: Spontaneous
  Country: DE (occurrence: DE)
  Receive Date: 20140121
  Receipt Date: 20140221
  Transmission Date: 20141002
  Serious: No
  Sender: FDA-Public Use
  Company Number: US-SA-2014SA007758

PATIENT
  Age: 8 Year
  Sex: Male

DRUGS (2)
  1. DDAVP [Suspect]
     Indication: ENURESIS
     Route: 048
     Dates: start: 20131002
  2. DDAVP [Suspect]
     Indication: ENURESIS
     Route: 048
     Dates: end: 20131104

REACTIONS (6)
  - Aggression [Recovered/Resolved]
  - Aggression [Recovered/Resolved]
  - Obsessive-compulsive disorder [Recovered/Resolved]
  - Restlessness [Not Recovered/Not Resolved]
  - Disturbance in attention [Not Recovered/Not Resolved]
  - Erythema [Unknown]
